FAERS Safety Report 4436010-8 (Version None)
Quarter: 2004Q3

REPORT INFORMATION
  Report Type: 
  Country: None (occurrence: None)
  Receive Date: 20040826
  Receipt Date: 20040810
  Transmission Date: 20050211
  Serious: Yes (Hospitalization)
  Sender: FDA-Public Use
  Company Number: 233926K04USA

PATIENT
  Age: 42 Year
  Sex: Female
  Weight: 58.6 kg

DRUGS (6)
  1. REBIF [Suspect]
     Indication: MULTIPLE SCLEROSIS
     Dosage: 44 MCG, 3 IN 1 WEEKS,
     Dates: start: 20040430, end: 20040616
  2. PROVIGIL [Concomitant]
  3. CELEBREX [Concomitant]
  4. MOTRIN [Concomitant]
  5. TYLENOL [Concomitant]
  6. AMANTADINE (AMANTADINE) [Concomitant]

REACTIONS (6)
  - ANOREXIA [None]
  - AUTOIMMUNE HEPATITIS [None]
  - BLOOD THYROID STIMULATING HORMONE DECREASED [None]
  - HEPATIC FAILURE [None]
  - RASH ERYTHEMATOUS [None]
  - SPIDER NAEVUS [None]
